FAERS Safety Report 10543455 (Version 3)
Quarter: 2015Q1

REPORT INFORMATION
  Report Type: Spontaneous
  Country: US (occurrence: US)
  Receive Date: 20141027
  Receipt Date: 20150115
  Transmission Date: 20150720
  Serious: Yes (Hospitalization, Other)
  Sender: FDA-Public Use
  Company Number: US-PFIZER INC-2014291873

PATIENT
  Sex: Female
  Weight: 67 kg

DRUGS (12)
  1. CELEBREX [Suspect]
     Active Substance: CELECOXIB
     Dosage: 200 MG, 2X/DAY
  2. TEMAZEPAM. [Concomitant]
     Active Substance: TEMAZEPAM
     Indication: SLEEP DISORDER
     Dosage: 30 MG, AS NEEDED
     Dates: start: 2009
  3. LOVASTATIN. [Concomitant]
     Active Substance: LOVASTATIN
     Dosage: 20 MG, 1X/DAY
     Dates: start: 2004
  4. LORAZEPAM. [Concomitant]
     Active Substance: LORAZEPAM
     Dosage: .5 MG, AS NEEDED
  5. MELOXICAM. [Concomitant]
     Active Substance: MELOXICAM
  6. OSTEO BIFLEX TRIPLE [Concomitant]
     Dosage: UNK
     Dates: start: 2004
  7. CELEBREX [Suspect]
     Active Substance: CELECOXIB
     Indication: OSTEOARTHRITIS
     Dosage: 200 MG, DAILY
  8. CELEBREX [Suspect]
     Active Substance: CELECOXIB
     Indication: ARTHRALGIA
     Dosage: 100 MG, 1X/DAY
  9. OMEPRAZOLE. [Concomitant]
     Active Substance: OMEPRAZOLE
     Dosage: 20 MG, 2X/DAY
     Dates: start: 2009
  10. CALCIUM, COLECALCIFEROL [Concomitant]
     Active Substance: CALCIUM\CHOLECALCIFEROL
     Dosage: UNK
     Dates: start: 2004
  11. CITALOPRAM HYDROBROMIDE. [Concomitant]
     Active Substance: CITALOPRAM HYDROBROMIDE
     Dosage: 20 MG, 1X/DAY
     Dates: start: 2004
  12. OXYCODONE/ACETAMINOPHEN [Concomitant]
     Active Substance: ACETAMINOPHEN\OXYCODONE HYDROCHLORIDE
     Dosage: AS NEEDED
     Dates: start: 2012

REACTIONS (14)
  - Osteoporosis [Not Recovered/Not Resolved]
  - Myalgia [Recovered/Resolved]
  - Neck pain [Recovered/Resolved]
  - Musculoskeletal pain [Recovered/Resolved]
  - Antinuclear antibody increased [Unknown]
  - Drug effect decreased [Recovered/Resolved]
  - Arthralgia [Not Recovered/Not Resolved]
  - Osteoarthritis [Not Recovered/Not Resolved]
  - Paraesthesia [Not Recovered/Not Resolved]
  - Upper limb fracture [Not Recovered/Not Resolved]
  - Fall [Not Recovered/Not Resolved]
  - Pain [Not Recovered/Not Resolved]
  - Red blood cell sedimentation rate increased [Unknown]
  - Disease progression [Not Recovered/Not Resolved]

NARRATIVE: CASE EVENT DATE: 2010
